FAERS Safety Report 13572354 (Version 1)
Quarter: 2017Q2

REPORT INFORMATION
  Report Type: Spontaneous
  Country: US (occurrence: US)
  Receive Date: 20170523
  Receipt Date: 20170523
  Transmission Date: 20170830
  Serious: Yes (Other)
  Sender: FDA-Public Use
  Company Number: None

PATIENT
  Age: 50 Year
  Sex: Female
  Weight: 51.75 kg

DRUGS (3)
  1. COLD AND COUGH DAY TIME CHILDRENS [Suspect]
     Active Substance: DEXTROMETHORPHAN HYDROBROMIDE\PHENYLEPHRINE HYDROCHLORIDE
     Indication: PARANASAL SINUS DISCOMFORT
     Dosage: QUANTITY:3 TEASPOON(S);?
     Route: 048
     Dates: start: 20170517, end: 20170517
  2. COLD AND COUGH DAY TIME CHILDRENS [Suspect]
     Active Substance: DEXTROMETHORPHAN HYDROBROMIDE\PHENYLEPHRINE HYDROCHLORIDE
     Indication: COUGH
     Dosage: QUANTITY:3 TEASPOON(S);?
     Route: 048
     Dates: start: 20170517, end: 20170517
  3. COLD AND COUGH DAY TIME CHILDRENS [Suspect]
     Active Substance: DEXTROMETHORPHAN HYDROBROMIDE\PHENYLEPHRINE HYDROCHLORIDE
     Indication: EAR DISCOMFORT
     Dosage: QUANTITY:3 TEASPOON(S);?
     Route: 048
     Dates: start: 20170517, end: 20170517

REACTIONS (4)
  - Amnesia [None]
  - Confusional state [None]
  - Disturbance in attention [None]
  - Disorientation [None]

NARRATIVE: CASE EVENT DATE: 20170517
